FAERS Safety Report 20597446 (Version 1)
Quarter: 2022Q1

REPORT INFORMATION
  Report Type: Spontaneous
  Country: GB (occurrence: GB)
  Receive Date: 20220315
  Receipt Date: 20220315
  Transmission Date: 20220424
  Serious: Yes (Hospitalization, Other)
  Sender: FDA-Public Use
  Company Number: GB-CELLTRION INC.-2022GB001378

PATIENT
  Age: 50 Year
  Sex: Female

DRUGS (124)
  1. TRASTUZUMAB [Suspect]
     Active Substance: TRASTUZUMAB
     Indication: HER2 positive breast cancer
     Dosage: 600 MILLIGRAM, QMO
     Route: 058
     Dates: start: 20150716, end: 20171222
  2. TRASTUZUMAB [Suspect]
     Active Substance: TRASTUZUMAB
     Dosage: 600 MILLIGRAM, QMO (DOSE FORM: 293)
     Route: 058
     Dates: start: 20150716
  3. XGEVA [Suspect]
     Active Substance: DENOSUMAB
     Indication: Metastases to bone
     Dosage: 120 MILLIGRAM, Q4WK (DOSE FORM: 231; CUMULATIVE DOSE: 612.6786 MG )
     Route: 058
     Dates: start: 20170604, end: 20170613
  4. XGEVA [Suspect]
     Active Substance: DENOSUMAB
     Dosage: 120 MILLIGRAM, Q6WK (DOSE FORM: 231; CUMULATIVE DOSE: 1060.0 MG )
     Route: 058
     Dates: start: 20180118
  5. EXEMESTANE [Suspect]
     Active Substance: EXEMESTANE
     Indication: Breast cancer metastatic
     Dosage: 25 MILLIGRAM, QD
     Route: 048
     Dates: start: 20170428, end: 20180110
  6. EXEMESTANE [Suspect]
     Active Substance: EXEMESTANE
     Indication: HER2 positive breast cancer
     Dosage: UNK MILLIGRAM
     Route: 048
  7. LETROZOLE [Suspect]
     Active Substance: LETROZOLE
     Indication: Breast cancer metastatic
     Dosage: 2.5 MILLIGRAM, QD
     Route: 048
     Dates: start: 20150707, end: 20170427
  8. LETROZOLE [Suspect]
     Active Substance: LETROZOLE
     Indication: HER2 positive breast cancer
     Dosage: 2.5 MILLIGRAM, QD
     Route: 048
     Dates: start: 20170427
  9. ADO-TRASTUZUMAB EMTANSINE [Suspect]
     Active Substance: ADO-TRASTUZUMAB EMTANSINE
     Indication: HER2 positive breast cancer
     Dosage: 420 MILLIGRAM, Q4WK  (DOSE FORM: 230)
     Route: 042
     Dates: start: 20180118, end: 20201117
  10. HYALURONIDASE (HUMAN RECOMBINANT) [Suspect]
     Active Substance: HYALURONIDASE (HUMAN RECOMBINANT)
     Indication: HER2 positive breast cancer
     Dosage: 600 MILLIGRAM, QMO
     Route: 058
     Dates: start: 20150716, end: 20171222
  11. CALCIUM CARBONATE\SODIUM ALGINATE\SODIUM BICARBONATE [Concomitant]
     Active Substance: CALCIUM CARBONATE\SODIUM ALGINATE\SODIUM BICARBONATE
     Indication: Product used for unknown indication
     Dosage: 15 MILLILITER, UNK
     Route: 048
  12. CALCIUM CARBONATE\SODIUM ALGINATE\SODIUM BICARBONATE [Concomitant]
     Active Substance: CALCIUM CARBONATE\SODIUM ALGINATE\SODIUM BICARBONATE
     Dosage: 15 MILLILITER, AS NECESSARY
     Route: 048
  13. ACYCLOVIR [Concomitant]
     Active Substance: ACYCLOVIR
     Indication: Herpes zoster
     Dosage: 800 MILLIGRAM, UNK
     Route: 048
     Dates: start: 20160727, end: 20160807
  14. ACYCLOVIR [Concomitant]
     Active Substance: ACYCLOVIR
     Dosage: 5 PERCENT, UNK
     Route: 061
     Dates: start: 20161213, end: 20161218
  15. AMITRIPTYLINE [Concomitant]
     Active Substance: AMITRIPTYLINE
     Indication: Herpes zoster
     Dosage: 10 MILLIGRAM, UNK
     Route: 048
     Dates: start: 20160727, end: 20160809
  16. AMOXICILLIN [Concomitant]
     Active Substance: AMOXICILLIN
     Indication: Lower respiratory tract infection
     Dosage: 3000 MILLIGRAM, QD
     Route: 048
     Dates: start: 20170701, end: 20170706
  17. AMOXICILLIN [Concomitant]
     Active Substance: AMOXICILLIN
     Indication: Osteomyelitis
     Dosage: 1000 MILLIGRAM, UNK
     Route: 048
     Dates: start: 20180701, end: 20180711
  18. AMOXICILLIN [Concomitant]
     Active Substance: AMOXICILLIN
     Dosage: 1500 MILLIGRAM, QD
     Route: 048
     Dates: start: 20180701, end: 20180711
  19. AMOXICILLIN [Concomitant]
     Active Substance: AMOXICILLIN
     Dosage: 3000 MILLIGRAM, QD
     Route: 048
     Dates: start: 20180701, end: 20180711
  20. AMOXICILLIN [Concomitant]
     Active Substance: AMOXICILLIN
     Dosage: 1 GRAM, UNK
     Route: 048
     Dates: start: 20180912, end: 20180915
  21. AMOXICILLIN [Concomitant]
     Active Substance: AMOXICILLIN
     Dosage: 1 GRAM, UNK
     Route: 048
     Dates: start: 20191218, end: 20191219
  22. PENICILLIN G [Concomitant]
     Active Substance: PENICILLIN G
     Indication: Pyrexia
     Dosage: 1.2 GRAM, 0.25 DAY
     Route: 042
     Dates: start: 20180912, end: 20180915
  23. PENICILLIN G [Concomitant]
     Active Substance: PENICILLIN G
     Indication: Cellulitis
  24. CIPROFLOXACIN [Concomitant]
     Active Substance: CIPROFLOXACIN
     Indication: Product used for unknown indication
     Dosage: 750 MILLIGRAM, 0.5 DAY
     Route: 048
     Dates: start: 20190205
  25. CITALOPRAM [Concomitant]
     Active Substance: CITALOPRAM HYDROBROMIDE
     Indication: Product used for unknown indication
     Dosage: 40 MILLIGRAM, QD
     Route: 048
     Dates: start: 2005
  26. CLARITHROMYCIN [Concomitant]
     Active Substance: CLARITHROMYCIN
     Indication: Lower respiratory tract infection
     Dosage: 1000 MG, QD
     Route: 048
     Dates: start: 20180701, end: 20180711
  27. CLARITHROMYCIN [Concomitant]
     Active Substance: CLARITHROMYCIN
     Dosage: 500 MILLIGRAM, BID
     Route: 048
     Dates: start: 20190415
  28. CLARITHROMYCIN [Concomitant]
     Active Substance: CLARITHROMYCIN
     Dosage: 500 MILLIGRAM, BID
     Route: 042
     Dates: start: 20190611, end: 20190611
  29. CLINDAMYCIN [Concomitant]
     Active Substance: CLINDAMYCIN
     Indication: Staphylococcal infection
     Dosage: 1.2 MILLIGRAM, 0.25 PER DAY
     Route: 042
     Dates: start: 20190611, end: 20190621
  30. CLINDAMYCIN [Concomitant]
     Active Substance: CLINDAMYCIN
     Dosage: 4.8 GRAM, QD
     Route: 042
     Dates: start: 20190611, end: 20190621
  31. AMOXICILLIN\CLAVULANATE POTASSIUM [Concomitant]
     Active Substance: AMOXICILLIN\CLAVULANATE POTASSIUM
     Indication: Product used for unknown indication
     Dosage: UNK
     Route: 048
     Dates: start: 20190322
  32. COTRIMOXAZOLE [Concomitant]
     Active Substance: SULFAMETHOXAZOLE\TRIMETHOPRIM
     Indication: Sepsis
     Dosage: UNK UNK, BID
     Route: 048
     Dates: start: 20181015, end: 20181022
  33. COTRIMOXAZOLE [Concomitant]
     Active Substance: SULFAMETHOXAZOLE\TRIMETHOPRIM
     Dosage: 960 MILLIGRAM, BID (CUMULATIVE DOSE: 1449600 MG)
     Route: 048
     Dates: start: 20190206, end: 20190211
  34. COTRIMOXAZOLE [Concomitant]
     Active Substance: SULFAMETHOXAZOLE\TRIMETHOPRIM
     Dosage: 960 MILLIGRAM, BID (CUMULATIVE DOSE: 1689520.0 MG)
     Route: 042
     Dates: start: 20190611, end: 20190611
  35. CODEINE [Concomitant]
     Active Substance: CODEINE
     Indication: Product used for unknown indication
     Dosage: 30 MILLIGRAM, AS NECESSARY
     Route: 048
     Dates: start: 201504
  36. CODEINE [Concomitant]
     Active Substance: CODEINE
     Dosage: 150 MILLIGRAM, QD
     Route: 048
     Dates: start: 201507
  37. CYCLIZINE [Concomitant]
     Active Substance: CYCLIZINE
     Indication: Product used for unknown indication
     Dosage: 50 MILLIGRAM, 3 DAY
     Route: 048
     Dates: start: 201507
  38. CYCLIZINE [Concomitant]
     Active Substance: CYCLIZINE
     Dosage: 150 MILLIGRAM, QD
     Route: 048
  39. DERMOL [BENZALKONIUM CHLORIDE;CHLORHEXIDINE HYDROCHLORIDE;ISOPROPYL MY [Concomitant]
     Indication: Product used for unknown indication
     Dosage: UNK, QD
     Route: 061
  40. DEXAMETHASONE [Concomitant]
     Active Substance: DEXAMETHASONE
     Indication: Metastases to bone
     Dosage: 8 MILLIGRAM, 0.5 DAY
     Route: 048
     Dates: start: 20151008, end: 20151020
  41. DEXAMETHASONE [Concomitant]
     Active Substance: DEXAMETHASONE
     Dosage: 4 MILLIGRAM, 0.5 DAY
     Route: 048
     Dates: start: 20151020, end: 20151103
  42. DEXAMETHASONE [Concomitant]
     Active Substance: DEXAMETHASONE
     Dosage: 4 MILLIGRAM, 0.5 DAY
     Route: 048
     Dates: start: 20151104, end: 20151110
  43. DEXAMETHASONE [Concomitant]
     Active Substance: DEXAMETHASONE
     Dosage: 2 MILLIGRAM, 0.5 DAY
     Route: 048
     Dates: start: 20151111, end: 20151117
  44. DEXAMETHASONE [Concomitant]
     Active Substance: DEXAMETHASONE
     Dosage: 1 MILLIGRAM, 0.5 DAY
     Route: 048
     Dates: start: 20151118, end: 20151124
  45. DEXAMETHASONE [Concomitant]
     Active Substance: DEXAMETHASONE
     Dosage: 1 MILLIGRAM, 0.5 DAY
     Route: 048
     Dates: start: 20151125, end: 20151202
  46. DIAZEPAM [Concomitant]
     Active Substance: DIAZEPAM
     Indication: Back pain
     Dosage: 6 MILLIGRAM, QD
     Route: 048
  47. DIAZEPAM [Concomitant]
     Active Substance: DIAZEPAM
     Indication: Musculoskeletal stiffness
     Dosage: 2 MILLIGRAM, 0.33 DAY
     Route: 048
     Dates: start: 20180105
  48. DOXYCYCLINE [Concomitant]
     Active Substance: DOXYCYCLINE
     Indication: Oral herpes
     Dosage: 100 MILLIGRAM, QD (CUMULATIVE DOSE: 1300 MG)
     Route: 048
     Dates: start: 20170112, end: 20170118
  49. DOXYCYCLINE [Concomitant]
     Active Substance: DOXYCYCLINE
     Indication: Herpes zoster
     Dosage: 200 MILLIGRAM, QD
     Route: 048
     Dates: start: 20180813, end: 20180814
  50. DOXYCYCLINE [Concomitant]
     Active Substance: DOXYCYCLINE
     Indication: Pyrexia
     Dosage: 100 MILLIGRAM, BID  (CUMULATIVE DOSE: 1300 MG)
     Route: 048
     Dates: start: 20180814, end: 20180814
  51. DOXYCYCLINE [Concomitant]
     Active Substance: DOXYCYCLINE
     Dosage: 100 MILLIGRAM, QD (CUMULATIVE DOSE: 1300 MG)
     Route: 048
     Dates: start: 20180815
  52. DOXYCYCLINE [Concomitant]
     Active Substance: DOXYCYCLINE
     Dosage: 100 MILLIGRAM, 0.5 DAY (CUMULATIVE DOSE: 1300 MG)
     Route: 048
     Dates: start: 20190929, end: 20191005
  53. FERROUS SULFATE [Concomitant]
     Active Substance: FERROUS SULFATE
     Indication: Anaemia
     Dosage: 200 MILLIGRAM, QD (CUMULATIVE DOSE: 259991.67 MG)
     Route: 048
     Dates: start: 20200804
  54. FLUCLOXACILLIN [Concomitant]
     Active Substance: FLUCLOXACILLIN
     Indication: Paronychia
     Dosage: 2000 MILLIGRAM, QD (CUMULATIVE DOSE: 16000 MG)
     Route: 048
     Dates: start: 20161110, end: 20161117
  55. FLUCLOXACILLIN [Concomitant]
     Active Substance: FLUCLOXACILLIN
     Indication: Cellulitis
     Dosage: 500 MILLIGRAM (CUMULATIVE DOSE: 16000 MG)
     Route: 048
     Dates: start: 20161110, end: 20161117
  56. FLUCLOXACILLIN [Concomitant]
     Active Substance: FLUCLOXACILLIN
     Indication: Pyrexia
     Dosage: 4 GRAM (CUMUALTIVE DOSE: 16000 MG)
     Route: 042
     Dates: start: 20180912, end: 20180915
  57. FLUCLOXACILLIN [Concomitant]
     Active Substance: FLUCLOXACILLIN
     Dosage: 1.2 GRAM (CUMULATIVE DOSE: 16000 MG)
     Route: 042
     Dates: start: 20180912, end: 20180915
  58. FLUCLOXACILLIN [Concomitant]
     Active Substance: FLUCLOXACILLIN
     Dosage: 500 MILLIGRAM (CUMULATIVE DOSE: 16000 MG)
     Route: 048
     Dates: start: 20180910, end: 20180912
  59. FLUCLOXACILLIN [Concomitant]
     Active Substance: FLUCLOXACILLIN
     Dosage: UNK
     Route: 048
     Dates: start: 20180910, end: 20180912
  60. FLUCLOXACILLIN [Concomitant]
     Active Substance: FLUCLOXACILLIN
     Dosage: 2000 MILLIGRAM, QD (CUMULATIVE DOSE: 16000 MG)
     Route: 048
     Dates: start: 20180910, end: 20180912
  61. FLUCLOXACILLIN [Concomitant]
     Active Substance: FLUCLOXACILLIN
     Dosage: 500 MILLIGRAM (CUMULATIVE DOSE: 16000 MG)
     Route: 048
     Dates: start: 20180915, end: 20180921
  62. FLUCLOXACILLIN [Concomitant]
     Active Substance: FLUCLOXACILLIN
     Dosage: 2000 MILLIGRAM, QD (CUMULATIVE DOSE: 16000 MG)
     Route: 048
     Dates: start: 20180915, end: 20180921
  63. FLUCLOXACILLIN [Concomitant]
     Active Substance: FLUCLOXACILLIN
     Dosage: UNK
  64. FUROSEMIDE [Concomitant]
     Active Substance: FUROSEMIDE
     Indication: Oedema
     Dosage: 80 MILLIGRAM, QD
     Route: 048
     Dates: start: 20151112, end: 20151118
  65. FUROSEMIDE [Concomitant]
     Active Substance: FUROSEMIDE
     Dosage: 20 MILLIGRAM, QD
     Route: 048
     Dates: start: 20191113, end: 20191116
  66. FUROSEMIDE [Concomitant]
     Active Substance: FUROSEMIDE
     Dosage: 40 MILLIGRAM, QD (CUMULATIVE DOSE: 560 MG)
     Route: 048
     Dates: start: 20191117
  67. FUROSEMIDE [Concomitant]
     Active Substance: FUROSEMIDE
     Dosage: 40 MILLIGRAM, QD
     Route: 042
     Dates: start: 20200622, end: 20200623
  68. FUROSEMIDE [Concomitant]
     Active Substance: FUROSEMIDE
     Dosage: 40 MILLIGRAM, 0.5 DAY (CUMULATIVE DOSE: 560 MG)
     Route: 042
     Dates: start: 20200626
  69. FUROSEMIDE [Concomitant]
     Active Substance: FUROSEMIDE
     Dosage: 40 MILLIGRAM, QD (CUMULATIVE DOSE: 560 MG)
     Route: 042
     Dates: start: 20200623, end: 20200626
  70. FUROSEMIDE [Concomitant]
     Active Substance: FUROSEMIDE
     Dosage: 40 MILLIGRAM, 0.5 DAY (CUMULATIVE DOSE: 560 MG)
     Route: 042
     Dates: start: 20200623, end: 20200626
  71. FUROSEMIDE [Concomitant]
     Active Substance: FUROSEMIDE
     Dosage: 20 MILLIGRAM, BID
     Route: 042
     Dates: start: 20200626, end: 20200626
  72. GABAPENTIN [Concomitant]
     Active Substance: GABAPENTIN
     Indication: Product used for unknown indication
     Dosage: 3.6 GRAM, QD
     Route: 048
  73. GABAPENTIN [Concomitant]
     Active Substance: GABAPENTIN
     Dosage: 1.2 GRAM, 3 DAY
     Route: 048
  74. GABAPENTIN [Concomitant]
     Active Substance: GABAPENTIN
     Dosage: 300 MILLIGRAM, 3 DAY
     Route: 048
     Dates: start: 20151231
  75. BUTYLSCOPOLAMINE BROMIDE [Concomitant]
     Active Substance: BUTYLSCOPOLAMINE BROMIDE
     Indication: Nausea
     Dosage: 10 MILLIGRAM
     Route: 048
     Dates: start: 20181222
  76. BUTYLSCOPOLAMINE BROMIDE [Concomitant]
     Active Substance: BUTYLSCOPOLAMINE BROMIDE
     Dosage: 30 MILLIGRAM, QD
     Route: 048
  77. ENOXAPARIN SODIUM [Concomitant]
     Active Substance: ENOXAPARIN SODIUM
     Indication: Thrombosis prophylaxis
     Dosage: 40 MILLIGRAM, QD
     Route: 058
     Dates: start: 20190610, end: 20190623
  78. LANSOPRAZOLE [Concomitant]
     Active Substance: LANSOPRAZOLE
     Indication: Product used for unknown indication
     Dosage: 30 MILLIGRAM, QD
     Route: 048
  79. LANSOPRAZOLE [Concomitant]
     Active Substance: LANSOPRAZOLE
     Dosage: 15 MILLIGRAM, QD
     Route: 048
     Dates: start: 2001
  80. LANSOPRAZOLE [Concomitant]
     Active Substance: LANSOPRAZOLE
     Dosage: 2.5 MILLIGRAM, QD
     Route: 048
     Dates: start: 20150707
  81. LEVOTHYROXINE [Concomitant]
     Active Substance: LEVOTHYROXINE
     Indication: Hypothyroidism
     Dosage: 50 MICROGRAM, QD
     Route: 048
     Dates: start: 20200311
  82. LINEZOLID [Concomitant]
     Active Substance: LINEZOLID
     Indication: Pyrexia
     Dosage: 600 MILLIGRAM, 0.5 DAY
     Route: 048
     Dates: start: 20181223, end: 20181227
  83. LISINOPRIL [Concomitant]
     Active Substance: LISINOPRIL
     Indication: Ejection fraction decreased
     Dosage: 2.5 MILLIGRAM, UNK
     Route: 048
     Dates: start: 20161110
  84. LOPERAMIDE [Concomitant]
     Active Substance: LOPERAMIDE
     Indication: Diarrhoea
     Dosage: UNK
     Dates: start: 201804, end: 2019
  85. MAGNESIUM ASPARTATE [Concomitant]
     Active Substance: MAGNESIUM ASPARTATE
     Indication: Hypomagnesaemia
     Dosage: 6.5 GRAM, 0.5 PER DAY
     Route: 048
     Dates: start: 20191111
  86. MEROPENEM [Concomitant]
     Active Substance: MEROPENEM
     Indication: Pyrexia
     Dosage: 1 GRAM, 0.33 DAY
     Route: 042
     Dates: start: 20180813, end: 20180814
  87. MEROPENEM [Concomitant]
     Active Substance: MEROPENEM
     Dosage: 1 GRAM, 0.33 DAY
     Route: 042
     Dates: start: 20181222, end: 20181227
  88. MEROPENEM [Concomitant]
     Active Substance: MEROPENEM
     Dosage: 1 GRAM, 0.33 DAY
     Route: 042
     Dates: start: 20190205
  89. METRONIDAZOLE [Concomitant]
     Active Substance: METRONIDAZOLE
     Indication: Pyrexia
     Dosage: UNK
     Route: 048
     Dates: start: 20170701, end: 20170708
  90. METRONIDAZOLE [Concomitant]
     Active Substance: METRONIDAZOLE
     Indication: Osteomyelitis
     Dosage: 400 MILLIGRAM, QD
     Route: 048
     Dates: start: 20180915, end: 20180921
  91. METRONIDAZOLE [Concomitant]
     Active Substance: METRONIDAZOLE
     Indication: Cellulitis
     Dosage: 1600 MILLIGRAM, QD
     Route: 048
  92. MORPHINE SULFATE [Concomitant]
     Active Substance: MORPHINE SULFATE
     Indication: Back pain
     Dosage: 30 MILLIGRAM, QD
     Route: 048
     Dates: start: 201504, end: 20160516
  93. MORPHINE SULFATE [Concomitant]
     Active Substance: MORPHINE SULFATE
     Dosage: 60 MILLIGRAM
     Route: 048
     Dates: start: 201504, end: 20160516
  94. MORPHINE SULFATE [Concomitant]
     Active Substance: MORPHINE SULFATE
     Dosage: 40 MILLIGRAM, QD
     Route: 048
     Dates: start: 20150516, end: 201611
  95. MORPHINE SULFATE [Concomitant]
     Active Substance: MORPHINE SULFATE
     Dosage: 30 MILLIGRAM, QD
     Route: 048
     Dates: start: 201611
  96. MORPHINE SULFATE [Concomitant]
     Active Substance: MORPHINE SULFATE
     Dosage: 30 MILLIGRAM
     Route: 048
     Dates: start: 201611
  97. MORPHINE SULFATE [Concomitant]
     Active Substance: MORPHINE SULFATE
     Dosage: 10 MILLIGRAM, 0.25 PER DAY
     Route: 048
     Dates: start: 20171224
  98. MORPHINE SULFATE [Concomitant]
     Active Substance: MORPHINE SULFATE
     Dosage: 40 MILLIGRAM, QD (CUMULATIVE DOSE: 13840.0 MG)
     Route: 048
     Dates: start: 20171224
  99. NAPROXEN [Concomitant]
     Active Substance: NAPROXEN
     Indication: Product used for unknown indication
     Dosage: 250 MILLIGRAM, QD
     Route: 048
  100. NAPROXEN [Concomitant]
     Active Substance: NAPROXEN
     Dosage: 500 MILLIGRAM, QD
     Route: 048
  101. ACETAMINOPHEN [Concomitant]
     Active Substance: ACETAMINOPHEN
     Indication: Product used for unknown indication
     Dosage: 500 MILLIGRAM, UNK
     Route: 048
     Dates: start: 201504
  102. PIPERACILLIN AND TAZOBACTAM [Concomitant]
     Active Substance: PIPERACILLIN SODIUM\TAZOBACTAM SODIUM
     Indication: Product used for unknown indication
     Dosage: 4.5 MILLIGRAM
     Route: 042
     Dates: start: 20191221
  103. PROMETHAZINE HYDROCHLORIDE [Concomitant]
     Active Substance: PROMETHAZINE HYDROCHLORIDE
     Indication: Product used for unknown indication
     Dosage: 25 MILLIGRAM, QD
     Route: 048
  104. PROMETHAZINE HYDROCHLORIDE [Concomitant]
     Active Substance: PROMETHAZINE HYDROCHLORIDE
     Dosage: 50 MILLIGRAM, QD
     Route: 048
  105. PIPERACILLIN SODIUM\TAZOBACTAM SODIUM [Concomitant]
     Active Substance: PIPERACILLIN SODIUM\TAZOBACTAM SODIUM
     Indication: Product used for unknown indication
     Dosage: 4.5 MILLIGRAM
     Route: 042
     Dates: start: 20191221
  106. TEICOPLANIN [Concomitant]
     Active Substance: TEICOPLANIN
     Indication: Pyrexia
     Dosage: 600 MILLIGRAM, 0.5 DAY
     Route: 042
     Dates: start: 20181019, end: 20181025
  107. TINZAPARIN [Concomitant]
     Active Substance: TINZAPARIN
     Indication: Deep vein thrombosis
     Dosage: 22000 INTERNATIONAL UNIT
     Route: 058
     Dates: start: 20190928
  108. TINZAPARIN [Concomitant]
     Active Substance: TINZAPARIN
     Dosage: 22000 INTERNATIONAL UNIT
     Route: 058
     Dates: start: 20200622
  109. TINZAPARIN [Concomitant]
     Active Substance: TINZAPARIN
     Dosage: 22000 INTERNATIONAL UNIT
     Route: 058
     Dates: start: 20200624, end: 20200624
  110. VITAMIN D3 [Concomitant]
     Active Substance: CHOLECALCIFEROL
     Indication: Bone disorder
     Dosage: 400 INTERNATIONAL UNIT, QD
     Route: 048
     Dates: start: 20150827
  111. ZANAMIVIR [Concomitant]
     Active Substance: ZANAMIVIR
     Dosage: 10 MILLIGRAM, UNK
     Route: 065
     Dates: start: 20191218, end: 20191219
  112. ZOMETA [Concomitant]
     Active Substance: ZOLEDRONIC ACID
     Indication: Bone disorder
     Dosage: 4 MILLIGRAM, Q4MO
     Route: 042
     Dates: start: 20150827, end: 20160314
  113. MORPHINE SULFATE [Concomitant]
     Active Substance: MORPHINE SULFATE
     Indication: Metastatic neoplasm
     Dosage: 60 MILLIGRAM, QD
     Route: 048
     Dates: start: 201611
  114. MORPHINE SULFATE [Concomitant]
     Active Substance: MORPHINE SULFATE
     Indication: Pain
     Dosage: 30 MILLIGRAM, ( 0.5 DAY) Q3WK
     Route: 048
     Dates: start: 201611
  115. MORPHINE SULFATE [Concomitant]
     Active Substance: MORPHINE SULFATE
     Indication: Metastases to bone
  116. WHOLE BLOOD [Concomitant]
     Active Substance: WHOLE BLOOD
     Indication: Anaemia
     Dosage: 2 UNIT
     Route: 042
     Dates: start: 20160317, end: 20160317
  117. WHOLE BLOOD [Concomitant]
     Active Substance: WHOLE BLOOD
     Dosage: UNK
     Route: 065
     Dates: start: 20161022, end: 20161022
  118. WHOLE BLOOD [Concomitant]
     Active Substance: WHOLE BLOOD
     Dosage: UNK
     Route: 065
     Dates: start: 20170906, end: 20170906
  119. WHOLE BLOOD [Concomitant]
     Active Substance: WHOLE BLOOD
     Dosage: 2 UNIT
     Route: 042
     Dates: start: 20181022, end: 20181022
  120. WHOLE BLOOD [Concomitant]
     Active Substance: WHOLE BLOOD
     Dosage: 2 UNIT
     Route: 042
     Dates: start: 20190611, end: 20190611
  121. WHOLE BLOOD [Concomitant]
     Active Substance: WHOLE BLOOD
     Dosage: 2 UNIT
     Route: 042
     Dates: start: 20191112, end: 20191112
  122. WHOLE BLOOD [Concomitant]
     Active Substance: WHOLE BLOOD
     Dosage: 3 UNIT
     Route: 042
     Dates: start: 20200501, end: 20200501
  123. WHOLE BLOOD [Concomitant]
     Active Substance: WHOLE BLOOD
     Dosage: 3 UNIT
     Route: 042
     Dates: start: 20200613, end: 20200613
  124. WHOLE BLOOD [Concomitant]
     Active Substance: WHOLE BLOOD
     Dosage: 2 UNIT
     Route: 042
     Dates: start: 20200718, end: 20200718

REACTIONS (14)
  - Haemoptysis [Recovered/Resolved]
  - Klebsiella infection [Recovered/Resolved]
  - Candida infection [Recovered/Resolved]
  - Escherichia infection [Recovered/Resolved]
  - Lower respiratory tract infection [Recovered/Resolved]
  - Lower respiratory tract infection [Recovered/Resolved]
  - Sepsis [Recovered/Resolved]
  - Pneumonia [Recovered/Resolved]
  - Cellulitis [Recovered/Resolved]
  - Pyrexia [Not Recovered/Not Resolved]
  - Infection [Not Recovered/Not Resolved]
  - Diarrhoea [Recovered/Resolved]
  - Constipation [Recovered/Resolved]
  - Off label use [Unknown]

NARRATIVE: CASE EVENT DATE: 20170112
